FAERS Safety Report 4894151-5 (Version None)
Quarter: 2006Q1

REPORT INFORMATION
  Report Type: 
  Country: None (occurrence: None)
  Receive Date: 20060127
  Receipt Date: 20050825
  Transmission Date: 20060701
  Serious: No
  Sender: FDA-Public Use
  Company Number: US-GLAXOSMITHKLINE-A0572297A

PATIENT
  Sex: Female

DRUGS (3)
  1. WELLBUTRIN [Suspect]
     Indication: DRUG USE FOR UNKNOWN INDICATION
     Route: 048
     Dates: start: 20050801
  2. CELEBREX [Concomitant]
     Dates: start: 20050721, end: 20050810
  3. AUGMENTIN [Concomitant]
     Dates: end: 20050810

REACTIONS (1)
  - RASH [None]
